FAERS Safety Report 12721529 (Version 2)
Quarter: 2016Q4

REPORT INFORMATION
  Report Type: Spontaneous
  Country: US (occurrence: US)
  Receive Date: 20160907
  Receipt Date: 20161122
  Transmission Date: 20170207
  Serious: No
  Sender: FDA-Public Use
  Company Number: US-PFIZER INC-2016414870

PATIENT
  Age: 33 Year
  Sex: Female
  Weight: 56 kg

DRUGS (2)
  1. VENLAFAXINE HCL [Suspect]
     Active Substance: VENLAFAXINE HYDROCHLORIDE
     Indication: ANXIETY
  2. VENLAFAXINE HCL [Suspect]
     Active Substance: VENLAFAXINE HYDROCHLORIDE
     Indication: DEPRESSION
     Dosage: 37.5 MG OR 75 MG
     Route: 048
     Dates: start: 2010

REACTIONS (3)
  - Insomnia [Recovered/Resolved]
  - Gait disturbance [Recovered/Resolved]
  - Muscle tightness [Recovered/Resolved]
